FAERS Safety Report 25878542 (Version 2)
Quarter: 2025Q4

REPORT INFORMATION
  Report Type: Spontaneous
  Country: BR (occurrence: BR)
  Receive Date: 20251003
  Receipt Date: 20251017
  Transmission Date: 20260118
  Serious: Yes (Other)
  Sender: NOVARTIS
  Company Number: BR-002147023-NVSC2025BR137829

PATIENT
  Sex: Male

DRUGS (2)
  1. COSENTYX [Suspect]
     Active Substance: SECUKINUMAB
     Indication: Psoriasis
     Dosage: 300 MG
     Route: 065
  2. COSENTYX [Suspect]
     Active Substance: SECUKINUMAB
     Indication: Psoriatic arthropathy

REACTIONS (8)
  - Immunodeficiency [Unknown]
  - Drug dose omission by device [Not Recovered/Not Resolved]
  - Device defective [Not Recovered/Not Resolved]
  - Manufacturing issue [Not Recovered/Not Resolved]
  - Oropharyngeal discomfort [Unknown]
  - Sinusitis [Unknown]
  - Device leakage [Unknown]
  - Abdominal distension [Unknown]
